FAERS Safety Report 8435059-8 (Version None)
Quarter: 2012Q2

REPORT INFORMATION
  Report Type: 
  Country: None (occurrence: None)
  Receive Date: 20120614
  Receipt Date: 20120611
  Transmission Date: 20120825
  Serious: Yes (Hospitalization)
  Sender: FDA-Public Use
  Company Number: DE-AMGEN-DEUSP2012036223

PATIENT
  Sex: Male

DRUGS (11)
  1. DIGITOXIN TAB [Concomitant]
     Dosage: 1 MG, UNK
     Route: 048
  2. CYCLOPHOSPHAMIDE [Suspect]
     Indication: B-CELL LYMPHOMA
     Dosage: 1640 MG, Q2WK
     Route: 042
     Dates: start: 20120417
  3. AMIODARONE HYDROCHLORIDE [Concomitant]
     Indication: TACHYARRHYTHMIA
     Dosage: 200 MG, UNK
     Route: 048
     Dates: start: 20120505
  4. VINCRISTINE SULFATE [Suspect]
     Indication: B-CELL LYMPHOMA
     Dosage: 2 MG, Q2WK
     Route: 042
     Dates: start: 20120417
  5. NEULASTA [Suspect]
     Indication: B-CELL LYMPHOMA
     Dosage: 6 MG, UNK
     Route: 058
     Dates: start: 20120420
  6. DOXORUBICIN HCL [Suspect]
     Indication: B-CELL LYMPHOMA
     Dosage: 110 MG, Q2WK
     Route: 042
     Dates: start: 20120417
  7. BISOPROLOL FUMARATE [Concomitant]
     Indication: HYPERTENSION
     Dosage: 5 MG, UNK
     Route: 048
  8. PREDNISONE TAB [Suspect]
     Indication: B-CELL LYMPHOMA
     Dosage: 100 MG, UNK
     Route: 042
     Dates: start: 20120417
  9. SIMVASTATIN [Concomitant]
     Indication: HYPERLIPIDAEMIA
     Dosage: 20 MG, UNK
     Route: 048
  10. RITUXIMAB [Suspect]
     Indication: B-CELL LYMPHOMA
     Dosage: 800 MG, Q2WK
     Route: 042
     Dates: start: 20120416
  11. LEVOTHYROXINE SODIUM [Concomitant]
     Indication: HYPERTHYROIDISM
     Dosage: 100 MG, UNK
     Route: 048

REACTIONS (2)
  - PAIN OF SKIN [None]
  - PALMAR-PLANTAR ERYTHRODYSAESTHESIA SYNDROME [None]
